FAERS Safety Report 10576628 (Version 1)
Quarter: 2014Q4

REPORT INFORMATION
  Report Type: Spontaneous
  Country: US (occurrence: None)
  Receive Date: 20141110
  Receipt Date: 20141110
  Transmission Date: 20150529
  Serious: No
  Sender: FDA-Public Use
  Company Number: None

PATIENT
  Age: 61 Year
  Sex: Male
  Weight: 108.86 kg

DRUGS (1)
  1. FARXIGA [Suspect]
     Active Substance: DAPAGLIFLOZIN PROPANEDIOL
     Indication: DIABETES MELLITUS
     Dosage: 1 PILL
     Route: 048
     Dates: start: 20141030, end: 20141107

REACTIONS (4)
  - Rash erythematous [None]
  - Rash [None]
  - Lymphadenopathy [None]
  - Feeling hot [None]

NARRATIVE: CASE EVENT DATE: 20141107
